FAERS Safety Report 10754977 (Version 1)
Quarter: 2015Q1

REPORT INFORMATION
  Report Type: Spontaneous
  Country: US (occurrence: None)
  Receive Date: 20150130
  Receipt Date: 20150130
  Transmission Date: 20150721
  Serious: No
  Sender: FDA-Public Use
  Company Number: None

PATIENT
  Age: 16 Year
  Sex: Female
  Weight: 81.65 kg

DRUGS (3)
  1. ZONEGRAN [Suspect]
     Active Substance: ZONISAMIDE
     Indication: ANXIETY
     Dosage: FOUR 25 MG PILLS ONCE DAILY TAKEN BY MOUTH
     Route: 048
  2. ZONEGRAN [Suspect]
     Active Substance: ZONISAMIDE
     Indication: STRESS
     Dosage: FOUR 25 MG PILLS ONCE DAILY TAKEN BY MOUTH
     Route: 048
  3. ZONEGRAN [Suspect]
     Active Substance: ZONISAMIDE
     Indication: SEIZURE
     Dosage: FOUR 25 MG PILLS ONCE DAILY TAKEN BY MOUTH
     Route: 048

REACTIONS (4)
  - Sleep disorder [None]
  - Hyperaesthesia [None]
  - Educational problem [None]
  - Activities of daily living impaired [None]

NARRATIVE: CASE EVENT DATE: 20150129
